FAERS Safety Report 25474062 (Version 1)
Quarter: 2025Q2

REPORT INFORMATION
  Report Type: Spontaneous
  Country: TW (occurrence: TW)
  Receive Date: 20250624
  Receipt Date: 20250624
  Transmission Date: 20250716
  Serious: Yes (Other)
  Sender: NOVARTIS
  Company Number: TW-002147023-NVSC2025TW098419

PATIENT
  Age: 53 Year
  Sex: Female

DRUGS (3)
  1. LETROZOLE [Suspect]
     Active Substance: LETROZOLE
     Indication: Product used for unknown indication
     Route: 065
     Dates: start: 20141121
  2. RIBOCICLIB [Suspect]
     Active Substance: RIBOCICLIB
     Indication: Product used for unknown indication
     Route: 065
     Dates: start: 20141121
  3. Gemcitabine;Paclitaxel [Concomitant]
     Indication: Product used for unknown indication
     Route: 065

REACTIONS (3)
  - Neutropenia [Unknown]
  - Disease progression [Unknown]
  - Electrocardiogram PR prolongation [Unknown]

NARRATIVE: CASE EVENT DATE: 20151204
